FAERS Safety Report 6866122-0 (Version None)
Quarter: 2010Q3

REPORT INFORMATION
  Report Type: 
  Country: None (occurrence: None)
  Receive Date: 20100722
  Receipt Date: 20100713
  Transmission Date: 20110219
  Serious: Yes (Other)
  Sender: FDA-Public Use
  Company Number: US-JNJFOC-20100704409

PATIENT
  Sex: Female
  Weight: 46.27 kg

DRUGS (4)
  1. DURAGESIC-100 [Suspect]
     Indication: MULTIPLE SCLEROSIS
     Route: 062
  2. DURAGESIC-100 [Suspect]
     Route: 062
  3. DURAGESIC-100 [Suspect]
     Route: 062
  4. ALL OTHER THERAPEUTIC PRODUCTS [Concomitant]
     Route: 065

REACTIONS (6)
  - CONVULSION [None]
  - DRUG ADMINISTERED AT INAPPROPRIATE SITE [None]
  - MIGRAINE [None]
  - MULTIPLE SCLEROSIS RELAPSE [None]
  - THERAPEUTIC RESPONSE DECREASED [None]
  - WRONG TECHNIQUE IN DRUG USAGE PROCESS [None]
